FAERS Safety Report 8688702 (Version 3)
Quarter: 2012Q4

REPORT INFORMATION
  Report Type: 
  Country: JP (occurrence: JP)
  Receive Date: 20120727
  Receipt Date: 20121217
  Transmission Date: 20130627
  Serious: Yes (Other)
  Sender: FDA-Public Use
  Company Number: JP-009507513-1207JPN008720

PATIENT
  Age: 58 Year
  Sex: Male
  Weight: 82 kg

DRUGS (12)
  1. PEGINTRON [Suspect]
     Indication: CHRONIC HEPATITIS C
     Dosage: 1.5 Microgram, qw
     Route: 058
     Dates: start: 20120509, end: 20121015
  2. REBETOL [Suspect]
     Indication: CHRONIC HEPATITIS C
     Dosage: 1000 mg, qd
     Route: 048
     Dates: start: 20120509, end: 20120527
  3. REBETOL [Suspect]
     Dosage: 600 mg, qd
     Route: 048
     Dates: start: 20120528, end: 20120603
  4. REBETOL [Suspect]
     Dosage: 400 mg, qd
     Route: 048
     Dates: start: 20120604
  5. REBETOL [Suspect]
     Dosage: 600 mg, qd
     Route: 048
     Dates: end: 20121015
  6. TELAVIC [Suspect]
     Indication: CHRONIC HEPATITIS C
     Dosage: 1500 mg, qd
     Route: 048
     Dates: start: 20120509, end: 20120731
  7. CLARITIN REDITABS [Concomitant]
     Indication: PROPHYLAXIS
     Dosage: 10 mg, qd,formulation:POR
     Route: 048
  8. LIVALO [Concomitant]
     Indication: HYPERLIPIDAEMIA
     Dosage: 2 mg, qd,formulation:POR
     Route: 048
  9. EPADEL S [Concomitant]
     Indication: HYPERLIPIDAEMIA
     Dosage: 1800 mg, qd,formulation:POR
     Route: 048
  10. FEROTYM [Concomitant]
     Indication: IRON DEFICIENCY ANAEMIA
     Dosage: 100 mg, qd,formulation:POR
     Route: 048
  11. SEFTAC [Concomitant]
     Indication: GASTRITIS
     Dosage: 150 mg, qd
     Route: 048
  12. ALLELOCK [Concomitant]
     Dosage: daily dose unknown,formulation:POR
     Route: 048

REACTIONS (3)
  - Anaemia [Not Recovered/Not Resolved]
  - Anaemia [Not Recovered/Not Resolved]
  - Anaemia [Not Recovered/Not Resolved]
